FAERS Safety Report 7879704-4 (Version None)
Quarter: 2011Q4

REPORT INFORMATION
  Report Type: 
  Country: None (occurrence: None)
  Receive Date: 20111101
  Receipt Date: 20111025
  Transmission Date: 20120403
  Serious: Yes (Hospitalization, Other)
  Sender: FDA-Public Use
  Company Number: US-AMGEN-US340051

PATIENT
  Age: 28 Year
  Sex: Male
  Weight: 95.8 kg

DRUGS (5)
  1. ESOMEPRAZOLE MAGNESIUM [Concomitant]
  2. NPLATE [Suspect]
     Dosage: 960 MUG, UNK
     Dates: start: 20081031, end: 20090205
  3. NPLATE [Suspect]
     Indication: IDIOPATHIC THROMBOCYTOPENIC PURPURA
     Dosage: 960 MUG, UNK
     Dates: start: 20081031, end: 20090205
  4. NPLATE [Suspect]
     Dates: start: 20081003
  5. ZOLPIDEM TARTRATE [Concomitant]

REACTIONS (4)
  - PLATELET COUNT DECREASED [None]
  - EPISTAXIS [None]
  - PNEUMONIA [None]
  - DRUG INEFFECTIVE [None]
